FAERS Safety Report 9439870 (Version 1)
Quarter: 2013Q3

REPORT INFORMATION
  Report Type: Spontaneous
  Country: US (occurrence: US)
  Receive Date: 20130805
  Receipt Date: 20130805
  Transmission Date: 20140515
  Serious: No
  Sender: FDA-Public Use
  Company Number: US-009507513-1307USA005699

PATIENT
  Sex: Male

DRUGS (4)
  1. DR. SCHOLL?S ODOR-X SPRAY POWDER [Suspect]
     Indication: HYPERHIDROSIS
     Dosage: UNK, UNKNOWN
     Route: 061
  2. DR. SCHOLL?S ODOR-X SPRAY POWDER [Suspect]
     Indication: SKIN ODOUR ABNORMAL
  3. DR. SCHOLL?S ODOR-X FOOT POWDER [Suspect]
     Indication: HYPERHIDROSIS
     Dosage: UNK, UNKNOWN
     Route: 061
  4. DR. SCHOLL?S ODOR-X FOOT POWDER [Suspect]
     Indication: SKIN ODOUR ABNORMAL

REACTIONS (1)
  - Therapeutic product ineffective [Unknown]
